FAERS Safety Report 10716843 (Version 1)
Quarter: 2015Q1

REPORT INFORMATION
  Report Type: Spontaneous
  Country: US (occurrence: None)
  Receive Date: 20150115
  Receipt Date: 20150115
  Transmission Date: 20150721
  Serious: No
  Sender: FDA-Public Use
  Company Number: None

PATIENT
  Age: 71 Year
  Sex: Female
  Weight: 185.98 kg

DRUGS (2)
  1. VOLTAREN [Suspect]
     Active Substance: DICLOFENAC SODIUM
     Indication: ARTHRALGIA
     Dosage: USE ON KNEES 2 TIMES/DAY, APPLED TO A SURFACE USUALLY THE SKIN
     Dates: start: 20141209, end: 20141211
  2. VOLTAREN [Suspect]
     Active Substance: DICLOFENAC SODIUM
     Indication: MUSCLE STRAIN
     Dosage: USE ON KNEES 2 TIMES/DAY, APPLED TO A SURFACE USUALLY THE SKIN
     Dates: start: 20141209, end: 20141211

REACTIONS (5)
  - Dyspnoea [None]
  - Application site inflammation [None]
  - Joint swelling [None]
  - Peripheral swelling [None]
  - Oedema [None]

NARRATIVE: CASE EVENT DATE: 20141209
